FAERS Safety Report 14015318 (Version 2)
Quarter: 2017Q4

REPORT INFORMATION
  Report Type: Spontaneous
  Country: GB (occurrence: GB)
  Receive Date: 20170927
  Receipt Date: 20171013
  Transmission Date: 20180321
  Serious: Yes (Disabling, Other)
  Sender: FDA-Public Use
  Company Number: GB-PFIZER INC-2017413012

PATIENT
  Age: 74 Year
  Sex: Female

DRUGS (13)
  1. SALMETEROL [Concomitant]
     Active Substance: SALMETEROL
     Dosage: 50 UG, AS NEEDED
     Route: 055
  2. LYRICA [Suspect]
     Active Substance: PREGABALIN
     Dosage: 25 MG, UNK
     Dates: start: 20161003
  3. ZIMOVANE [Concomitant]
     Active Substance: ZOPICLONE
     Dosage: 7.5 MG, 1X/DAY (AT NIGHT)
  4. VENTOLIN [Concomitant]
     Active Substance: ALBUTEROL SULFATE
     Dosage: 100 UG, AS NEEDED (1 TO 2 PUFFS UP TO 4 TIMES A DAY.)
     Route: 055
  5. NEOCLARITYN [Concomitant]
     Active Substance: DESLORATADINE
     Dosage: 5 MG, 1X/DAY
  6. EURAX [Concomitant]
     Active Substance: CROTAMITON
     Dosage: 1 DF, UNK (2 OR 3 TIMES DAILY)
  7. LYRICA [Suspect]
     Active Substance: PREGABALIN
     Dosage: 100 MG, UNK
     Dates: start: 20170519
  8. CLOMETHIAZOLE [Concomitant]
     Active Substance: CLOMETHIAZOLE
     Dosage: 384 MG, 2X/DAY
  9. FLUTICASONE. [Concomitant]
     Active Substance: FLUTICASONE
     Dosage: UNK
  10. LYRICA [Suspect]
     Active Substance: PREGABALIN
     Dosage: 100 MG, UNK
     Dates: end: 20170511
  11. LYRICA [Suspect]
     Active Substance: PREGABALIN
     Dosage: 150 MG, UNK
     Dates: start: 20170511, end: 20170519
  12. FLUTICASONE. [Concomitant]
     Active Substance: FLUTICASONE
     Dosage: 500 UG, 2X/DAY
     Route: 055
  13. LEVOTHYROXINE SODIUM. [Concomitant]
     Active Substance: LEVOTHYROXINE SODIUM
     Dosage: 150 UG, 1X/DAY

REACTIONS (25)
  - Head discomfort [Not Recovered/Not Resolved]
  - Erythema [Not Recovered/Not Resolved]
  - Peripheral swelling [Not Recovered/Not Resolved]
  - Abnormal weight gain [Not Recovered/Not Resolved]
  - Condition aggravated [Not Recovered/Not Resolved]
  - Agoraphobia [Not Recovered/Not Resolved]
  - Visual impairment [Not Recovered/Not Resolved]
  - Joint swelling [Not Recovered/Not Resolved]
  - Allergic oedema [Not Recovered/Not Resolved]
  - Tinnitus [Not Recovered/Not Resolved]
  - Pollakiuria [Not Recovered/Not Resolved]
  - Parosmia [Not Recovered/Not Resolved]
  - Asthma [Not Recovered/Not Resolved]
  - Dysgraphia [Not Recovered/Not Resolved]
  - Depression [Not Recovered/Not Resolved]
  - Swollen tongue [Not Recovered/Not Resolved]
  - Generalised anxiety disorder [Not Recovered/Not Resolved]
  - Malaise [Not Recovered/Not Resolved]
  - Eating disorder [Not Recovered/Not Resolved]
  - Gait disturbance [Not Recovered/Not Resolved]
  - Confusional state [Not Recovered/Not Resolved]
  - Panic attack [Not Recovered/Not Resolved]
  - Dissociation [Not Recovered/Not Resolved]
  - Swelling face [Not Recovered/Not Resolved]
  - Visual brightness [Not Recovered/Not Resolved]

NARRATIVE: CASE EVENT DATE: 20170403
